FAERS Safety Report 17647513 (Version 4)
Quarter: 2021Q2

REPORT INFORMATION
  Report Type: Spontaneous
  Country: CA (occurrence: CA)
  Receive Date: 20200409
  Receipt Date: 20210513
  Transmission Date: 20210716
  Serious: Yes (Other)
  Sender: FDA-Public Use
  Company Number: CA-SAMSUNG BIOEPIS-SB-2020-11622

PATIENT
  Age: 50 Year
  Sex: Female
  Weight: 66 kg

DRUGS (3)
  1. INFLIXIMAB [Suspect]
     Active Substance: INFLIXIMAB
     Indication: CROHN^S DISEASE
     Route: 042
  2. PREDNISONE. [Suspect]
     Active Substance: PREDNISONE
     Indication: PRODUCT USED FOR UNKNOWN INDICATION
     Dosage: UNKNOWN
     Route: 065
  3. PERINDOPRIL [Concomitant]
     Active Substance: PERINDOPRIL
     Indication: PRODUCT USED FOR UNKNOWN INDICATION
     Route: 048

REACTIONS (23)
  - Cough [Recovered/Resolved]
  - Diarrhoea [Recovered/Resolved]
  - Headache [Recovered/Resolved]
  - Drug interaction [Recovered/Resolved]
  - Anal fissure [Recovered/Resolved]
  - Blood pressure fluctuation [Recovered/Resolved]
  - Female genital tract fistula [Recovered/Resolved]
  - Nodule [Recovered/Resolved]
  - External ear pain [Recovered/Resolved]
  - Blood pressure diastolic increased [Recovered/Resolved]
  - Eczema [Recovered/Resolved]
  - Arthralgia [Recovered/Resolved]
  - Condition aggravated [Recovered/Resolved]
  - Injection site pain [Recovered/Resolved]
  - Rectal discharge [Recovered/Resolved]
  - Arthritis [Recovered/Resolved]
  - Blood pressure increased [Recovered/Resolved]
  - Drug ineffective [Recovered/Resolved]
  - Nasopharyngitis [Recovered/Resolved]
  - Panniculitis [Recovered/Resolved]
  - Dysphonia [Recovered/Resolved]
  - Musculoskeletal disorder [Recovered/Resolved]
  - Weight increased [Recovered/Resolved]
